FAERS Safety Report 9179803 (Version 2)
Quarter: 2013Q2

REPORT INFORMATION
  Report Type: Spontaneous
  Country: US (occurrence: US)
  Receive Date: 20130321
  Receipt Date: 20130418
  Transmission Date: 20140414
  Serious: No
  Sender: FDA-Public Use
  Company Number: US-009507513-1303USA010720

PATIENT
  Age: 67 Year
  Sex: Female
  Weight: 56.24 kg

DRUGS (4)
  1. CLARITIN REDITABS [Suspect]
     Indication: LACRIMATION INCREASED
     Dosage: UNK, UNKNOWN
     Route: 048
     Dates: start: 20130318
  2. CLARITIN REDITABS [Suspect]
     Indication: SNEEZING
     Dosage: 10 MG, QD
     Route: 048
     Dates: start: 20130311, end: 20130318
  3. CLARITIN REDITABS [Suspect]
     Indication: EYE PRURITUS
  4. CLARITIN REDITABS [Suspect]
     Indication: RHINORRHOEA

REACTIONS (1)
  - Therapeutic product ineffective [Unknown]
